FAERS Safety Report 7017440-7 (Version None)
Quarter: 2010Q3

REPORT INFORMATION
  Report Type: 
  Country: None (occurrence: None)
  Receive Date: 20100928
  Receipt Date: 20100920
  Transmission Date: 20110219
  Serious: Yes (Death, Other)
  Sender: FDA-Public Use
  Company Number: PHHY2010MX63298

PATIENT
  Age: 84 Year
  Sex: Female

DRUGS (2)
  1. DIOVAN HCT [Suspect]
     Dosage: 1 TABLET (80/ UNKNOWN MG) DAILY
     Route: 048
  2. TENORETIC 100 [Concomitant]

REACTIONS (2)
  - INFLUENZA [None]
  - RESPIRATORY ARREST [None]
